FAERS Safety Report 15570039 (Version 1)
Quarter: 2018Q4

REPORT INFORMATION
  Report Type: Report from Study
  Country: None (occurrence: US)
  Receive Date: 20181031
  Receipt Date: 20181031
  Transmission Date: 20190205
  Serious: Yes (Other)
  Sender: FDA-Public Use
  Company Number: US-ABBVIE-18K-163-2536290-00

PATIENT
  Sex: Female

DRUGS (1)
  1. HUMIRA [Suspect]
     Active Substance: ADALIMUMAB
     Indication: PSORIASIS
     Route: 058
     Dates: end: 2018

REACTIONS (6)
  - Psoriasis [Recovered/Resolved]
  - Abdominal distension [Unknown]
  - Dry skin [Not Recovered/Not Resolved]
  - Drug effect variable [Not Recovered/Not Resolved]
  - Large intestine polyp [Unknown]
  - Pain [Unknown]
